FAERS Safety Report 7636123-3 (Version None)
Quarter: 2011Q3

REPORT INFORMATION
  Report Type: 
  Country: None (occurrence: None)
  Receive Date: 20110719
  Receipt Date: 20110718
  Transmission Date: 20111222
  Serious: Yes (Other)
  Sender: FDA-Public Use
  Company Number: SP03818

PATIENT
  Age: 64 Year
  Sex: Female

DRUGS (1)
  1. MOVIPREP [Suspect]
     Indication: BOWEL PREPARATION
     Dosage: (500 ML), ORAL
     Route: 048
     Dates: start: 20110705, end: 20110705

REACTIONS (5)
  - OROPHARYNGEAL PAIN [None]
  - SWELLING FACE [None]
  - OEDEMA PERIPHERAL [None]
  - DYSPNOEA [None]
  - ANAPHYLACTIC REACTION [None]
